FAERS Safety Report 10345352 (Version 1)
Quarter: 2014Q3

REPORT INFORMATION
  Report Type: Spontaneous
  Country: US (occurrence: None)
  Receive Date: 20140725
  Receipt Date: 20140725
  Transmission Date: 20150326
  Serious: Yes (Hospitalization)
  Sender: FDA-Public Use
  Company Number: None

PATIENT
  Age: 80 Year
  Sex: Female
  Weight: 68.04 kg

DRUGS (7)
  1. ATENOLOL. [Concomitant]
     Active Substance: ATENOLOL
  2. ASA [Concomitant]
     Active Substance: ASPIRIN
  3. FERRLECIT [Suspect]
     Active Substance: SODIUM FERRIC GLUCONATE COMPLEX
     Indication: IRON DEFICIENCY ANAEMIA
     Dosage: 125MG  X1  IV
     Route: 042
     Dates: start: 20140227
  4. SIMVASTATIN. [Concomitant]
     Active Substance: SIMVASTATIN
  5. AMLODIPINE [Concomitant]
     Active Substance: AMLODIPINE BESYLATE
  6. LISINOPRIL. [Concomitant]
     Active Substance: LISINOPRIL
  7. CLONIDINE. [Concomitant]
     Active Substance: CLONIDINE

REACTIONS (6)
  - Headache [None]
  - Diarrhoea [None]
  - Nausea [None]
  - Vomiting [None]
  - Anxiety [None]
  - Blood pressure decreased [None]

NARRATIVE: CASE EVENT DATE: 20140227
